FAERS Safety Report 8785210 (Version 3)
Quarter: 2013Q2

REPORT INFORMATION
  Report Type: Spontaneous
  Country: US (occurrence: US)
  Receive Date: 20120914
  Receipt Date: 20130531
  Transmission Date: 20140414
  Serious: Yes (Hospitalization, Disabling)
  Sender: FDA-Public Use
  Company Number: US-BAYER-2012-094799

PATIENT
  Age: 49 Year
  Sex: Female
  Weight: 77 kg

DRUGS (8)
  1. YAZ [Suspect]
     Dosage: UNK
     Dates: start: 2007, end: 2011
  2. YASMIN [Suspect]
     Dosage: UNK
     Dates: start: 2007, end: 2011
  3. OCELLA [Suspect]
     Dosage: UNK
     Dates: start: 2007, end: 2011
  4. BEYAZ [Suspect]
     Dosage: UNK
     Dates: start: 2008, end: 20100908
  5. BEYAZ [Suspect]
     Dosage: UNK
     Dates: start: 20110816
  6. VALACICLOVIR [Concomitant]
     Dosage: 500 MG, UNK
  7. NORTRIPTYLINE [Concomitant]
     Dosage: 10 OR 25 MG
  8. IBUPROFEN [Concomitant]

REACTIONS (10)
  - Pulmonary embolism [None]
  - Thrombosis [None]
  - Injury [None]
  - Pain [None]
  - Pain [None]
  - Swelling [None]
  - Dyspnoea exertional [None]
  - Mental disorder [None]
  - Limb injury [None]
  - Traumatic lung injury [None]
